FAERS Safety Report 6651417-6 (Version None)
Quarter: 2010Q1

REPORT INFORMATION
  Report Type: 
  Country: None (occurrence: None)
  Receive Date: 20100325
  Receipt Date: 20100312
  Transmission Date: 20100710
  Serious: Yes (Hospitalization, Other)
  Sender: FDA-Public Use
  Company Number: US-ELI_LILLY_AND_COMPANY-US200911001045

PATIENT
  Sex: Female

DRUGS (16)
  1. CYMBALTA [Suspect]
     Indication: DEPRESSION
     Dosage: 90 MG, DAILY (1/D)
     Route: 065
     Dates: start: 20080101
  2. CELEBREX [Concomitant]
  3. FUROSEMIDE [Concomitant]
     Dosage: UNK, AS NEEDED
  4. AMLODIPINE [Concomitant]
     Dosage: 5 MG, DAILY (1/D)
  5. METOPROLOL [Concomitant]
     Dosage: 25 MG, 2/D
  6. NEXIUM [Concomitant]
     Dosage: 40 MG, DAILY (1/D)
  7. ACTONEL [Concomitant]
     Dosage: 35 MG, WEEKLY (1/W)
  8. EFFEXOR [Concomitant]
     Dosage: 225 MG, EACH EVENING
  9. TRAZODONE HYDROCHLORIDE [Concomitant]
     Dosage: 150 MG, EACH EVENING
  10. NASONEX [Concomitant]
  11. CALCIUM [Concomitant]
  12. VITAMIN B COMPLEX TAB [Concomitant]
  13. IRON [Concomitant]
     Route: 048
  14. VITAMIN C [Concomitant]
  15. ALCOHOL [Concomitant]
     Dosage: UNK, DAILY (1/D)
  16. KLOR-CON [Concomitant]
     Dosage: 10 MEQ, DAILY (1/D)

REACTIONS (13)
  - ABNORMAL BEHAVIOUR [None]
  - ALCOHOL USE [None]
  - ATRIAL FIBRILLATION [None]
  - BLOOD URINE PRESENT [None]
  - CYSTITIS [None]
  - DRUG INTERACTION [None]
  - HAEMORRHAGE [None]
  - HOSPITALISATION [None]
  - PRODUCT OUTER PACKAGING ISSUE [None]
  - RENAL PAIN [None]
  - THERAPEUTIC RESPONSE DECREASED [None]
  - ULCER HAEMORRHAGE [None]
  - URINE COLOUR ABNORMAL [None]
